FAERS Safety Report 18593923 (Version 2)
Quarter: 2021Q2

REPORT INFORMATION
  Report Type: Other
  Country: HR (occurrence: HR)
  Receive Date: 20201209
  Receipt Date: 20210608
  Transmission Date: 20210717
  Serious: Yes (Life-Threatening)
  Sender: FDA-Public Use
  Company Number: HR-ROCHE-2729367

PATIENT

DRUGS (5)
  1. RITUXIMAB. [Suspect]
     Active Substance: RITUXIMAB
     Indication: DIFFUSE LARGE B-CELL LYMPHOMA
     Dosage: 6 OR 8 CYCLES OF BI?WEEKLY CHEMOIMMUNOTHERAPY (R?CHOEP14)
     Route: 065
  2. DOXORUBICIN [Suspect]
     Active Substance: DOXORUBICIN
     Indication: DIFFUSE LARGE B-CELL LYMPHOMA
     Dosage: 6 OR 8 CYCLES OF BI?WEEKLY CHEMOIMMUNOTHERAPY (R?CHOEP14)
     Route: 065
  3. CYCLOPHOSPHAMIDE. [Suspect]
     Active Substance: CYCLOPHOSPHAMIDE
     Indication: DIFFUSE LARGE B-CELL LYMPHOMA
     Dosage: 6 OR 8 CYCLES OF BI?WEEKLY CHEMOIMMUNOTHERAPY (R?CHOEP14)
     Route: 065
  4. ETOPOSIDE. [Suspect]
     Active Substance: ETOPOSIDE
     Indication: DIFFUSE LARGE B-CELL LYMPHOMA
     Dosage: 6 OR 8 CYCLES OF BI?WEEKLY CHEMOIMMUNOTHERAPY (R?CHOEP14)
     Route: 065
  5. VINCRISTINE [Suspect]
     Active Substance: VINCRISTINE
     Indication: DIFFUSE LARGE B-CELL LYMPHOMA
     Dosage: 6 OR 8 CYCLES OF BI?WEEKLY CHEMOIMMUNOTHERAPY (R?CHOEP14)
     Route: 065

REACTIONS (2)
  - Off label use [Unknown]
  - Blood disorder [Unknown]
